FAERS Safety Report 7010509-2 (Version None)
Quarter: 2010Q3

REPORT INFORMATION
  Report Type: 
  Country: None (occurrence: None)
  Receive Date: 20100923
  Receipt Date: 20100908
  Transmission Date: 20110219
  Serious: Yes (Disabling, Other)
  Sender: FDA-Public Use
  Company Number: US-ELI_LILLY_AND_COMPANY-US201009003631

PATIENT
  Sex: Female

DRUGS (9)
  1. FORTEO [Suspect]
     Indication: OSTEOPOROSIS
     Dosage: 20 UG, DAILY (1/D)
     Dates: end: 20100905
  2. VERAPAMIL HYDROCHLORIDE [Concomitant]
     Dosage: 120 MG, UNK
  3. ZOCOR [Concomitant]
     Dosage: UNK, DAILY (1/D)
  4. FLONASE [Concomitant]
     Indication: MULTIPLE ALLERGIES
     Route: 045
  5. RESTASIS [Concomitant]
  6. PRED FORTE [Concomitant]
     Indication: MULTIPLE ALLERGIES
     Route: 047
  7. VITAMIN D [Concomitant]
     Dosage: 50000 MG, WEEKLY (1/W)
  8. MINERAL TAB [Concomitant]
  9. ESTRACE [Concomitant]
     Dosage: UNK, QOD

REACTIONS (11)
  - ARTHRALGIA [None]
  - BONE PAIN [None]
  - GASTRIC DISORDER [None]
  - JOINT INJURY [None]
  - MALAISE [None]
  - MOBILITY DECREASED [None]
  - NAUSEA [None]
  - PAIN [None]
  - PAIN IN EXTREMITY [None]
  - RETCHING [None]
  - VOMITING [None]
